FAERS Safety Report 17864478 (Version 1)
Quarter: 2020Q2

REPORT INFORMATION
  Report Type: Spontaneous
  Country: US (occurrence: US)
  Receive Date: 20200604
  Receipt Date: 20200604
  Transmission Date: 20200714
  Serious: No
  Sender: FDA-Public Use
  Company Number: None

PATIENT
  Age: 29 Year
  Sex: Male

DRUGS (2)
  1. TRIKAFTA [Suspect]
     Active Substance: ELEXACAFTOR\IVACAFTOR\TEZACAFTOR
     Indication: CYSTIC FIBROSIS
     Dosage: ?          OTHER DOSE:100MGR 50MG/75 MG/;OTHER FREQUENCY:2 Q AM ;?
     Route: 048
     Dates: start: 20191224
  2. PULMOZYME [Suspect]
     Active Substance: DORNASE ALFA
     Route: 048

REACTIONS (1)
  - Cough [None]

NARRATIVE: CASE EVENT DATE: 202005
